FAERS Safety Report 14500919 (Version 1)
Quarter: 2018Q1

REPORT INFORMATION
  Report Type: Spontaneous
  Country: US (occurrence: US)
  Receive Date: 20180207
  Receipt Date: 20180207
  Transmission Date: 20180509
  Serious: No
  Sender: FDA-Public Use
  Company Number: US-AMGEN-USASP2017161915

PATIENT
  Age: 54 Year
  Sex: Female

DRUGS (3)
  1. NEULASTA [Suspect]
     Active Substance: PEGFILGRASTIM
     Indication: PRODUCT USED FOR UNKNOWN INDICATION
     Dosage: UNK UNK, Q3WK
     Route: 065
     Dates: start: 20170801, end: 2017
  2. TAXOTERE [Suspect]
     Active Substance: DOCETAXEL
     Indication: BREAST CANCER STAGE I
     Dosage: UNK UNK, Q3WK
     Route: 065
  3. NEULASTA [Suspect]
     Active Substance: PEGFILGRASTIM
     Dosage: UNK UNK, Q3WK
     Route: 065
     Dates: start: 20171010

REACTIONS (24)
  - Musculoskeletal pain [Recovered/Resolved]
  - Genital pain [Unknown]
  - Pain [Unknown]
  - Hypoaesthesia [Recovering/Resolving]
  - Nausea [Unknown]
  - Bone pain [Recovered/Resolved]
  - Pain of skin [Unknown]
  - Obstructive airways disorder [Unknown]
  - Stomatitis [Unknown]
  - Nasopharyngitis [Not Recovered/Not Resolved]
  - Muscle spasms [Recovering/Resolving]
  - Headache [Recovered/Resolved]
  - Pain in extremity [Recovered/Resolved]
  - Sneezing [Not Recovered/Not Resolved]
  - Cough [Not Recovered/Not Resolved]
  - Dysphagia [Unknown]
  - Influenza [Unknown]
  - Back pain [Recovered/Resolved]
  - Alopecia [Unknown]
  - Nail discolouration [Unknown]
  - Arthralgia [Recovered/Resolved]
  - Tremor [Recovering/Resolving]
  - Vomiting [Unknown]
  - Constipation [Recovering/Resolving]

NARRATIVE: CASE EVENT DATE: 2017
